FAERS Safety Report 10171881 (Version 1)
Quarter: 2014Q2

REPORT INFORMATION
  Report Type: Spontaneous
  Country: FR (occurrence: None)
  Receive Date: 20140512
  Receipt Date: 20140512
  Transmission Date: 20141212
  Serious: Yes (Life-Threatening)
  Sender: FDA-Public Use
  Company Number: 2323978

PATIENT
  Age: 47 Year
  Sex: Female

DRUGS (8)
  1. ATRACURIUM BESILATE [Suspect]
     Indication: INDUCTION OF ANAESTHESIA
     Dosage: 50 MG MILLIGRAM(S), UNKNOWN, INTRAVENOUS DRIP
     Route: 041
     Dates: start: 20140128, end: 20140128
  2. MIDAZOLAM MYLAN [Suspect]
     Indication: INDUCTION OF ANAESTHESIA
     Dosage: 2 MG MILLIGRAM(S), UNKNOWN, INTRAVENOUS DRIP
     Route: 041
     Dates: start: 20140128
  3. SUFENTANIL [Suspect]
     Indication: INDUCTION OF ANAESTHESIA
     Dosage: 15 UG MICROGRAM(S), UNKNOWN, INTRAVENOUS DRIP
     Route: 041
     Dates: start: 20140128
  4. PROPOFOL LIPURO [Suspect]
     Indication: INDUCTION OF ANAESTHESIA
     Dosage: 250 MG MILIGRAM(S), UNKNOWN, INTRAVENOUS DRIP
     Route: 041
     Dates: start: 20140128
  5. BISOPROLOL HEMIFUMARATE [Concomitant]
  6. CIMETIDINE [Concomitant]
  7. ALPRAZOLAM [Concomitant]
  8. OXYGEN [Concomitant]

REACTIONS (1)
  - Cardiac arrest [None]
